FAERS Safety Report 10050334 (Version 2)
Quarter: 2014Q2

REPORT INFORMATION
  Report Type: Spontaneous
  Country: DE (occurrence: DE)
  Receive Date: 20140401
  Receipt Date: 20140530
  Transmission Date: 20141212
  Serious: Yes (Other)
  Sender: FDA-Public Use
  Company Number: DE-BAYER-2014-048723

PATIENT
  Age: 73 Year
  Sex: Male
  Weight: 91.16 kg

DRUGS (11)
  1. XARELTO [Suspect]
     Indication: ATRIAL FIBRILLATION
     Dosage: 15 MG, UNK
     Dates: start: 20120131, end: 20140502
  2. XARELTO [Suspect]
     Indication: CEREBROVASCULAR ACCIDENT PROPHYLAXIS
  3. ASS [Concomitant]
  4. MULTAQ [Concomitant]
     Indication: CARDIAC FAILURE
     Dosage: UNK
     Dates: start: 20120127
  5. VOTUM [Concomitant]
     Indication: HYPERTENSION
     Dosage: UNK
     Dates: start: 20120215
  6. CARMEN [Concomitant]
     Indication: HYPERTENSION
     Dosage: 10 MG, UNK
  7. AMLODIPIN [Concomitant]
     Indication: HYPERTENSION
     Dosage: 5 MG, UNK
  8. TORASEMID [Concomitant]
     Indication: OEDEMA
     Dosage: UNK
     Dates: start: 20120213, end: 20120711
  9. ARCOXIA [Concomitant]
     Indication: OSTEOARTHRITIS
     Dosage: UNK
  10. ARCOXIA [Concomitant]
     Indication: ARTHRITIS
  11. NEBIVOLOL [Concomitant]
     Indication: ARRHYTHMIA
     Dosage: 2.5 MG, UNK
     Dates: end: 20121231

REACTIONS (7)
  - Hypochromic anaemia [Recovering/Resolving]
  - Aphthous stomatitis [Recovering/Resolving]
  - Angina pectoris [Recovering/Resolving]
  - Haemoglobin decreased [Recovering/Resolving]
  - Gastritis erosive [Recovering/Resolving]
  - Gastrointestinal haemorrhage [Recovering/Resolving]
  - Melaena [Recovering/Resolving]
